FAERS Safety Report 4538588-2 (Version None)
Quarter: 2004Q4

REPORT INFORMATION
  Report Type: 
  Country: None (occurrence: None)
  Receive Date: 20041222
  Receipt Date: 20041208
  Transmission Date: 20050328
  Serious: Yes (Other)
  Sender: FDA-Public Use
  Company Number: GBWYE272510DEC04

PATIENT
  Age: 67 Year
  Sex: Male

DRUGS (3)
  1. MINOCIN [Suspect]
     Dosage: 100 MG FREQUENCY, ORAL
     Route: 048
  2. TERBINAFINE HCL [Suspect]
     Indication: ONYCHOMYCOSIS
     Dosage: 250MG, FREQUENCY, ORAL
     Route: 048
     Dates: start: 20041007, end: 20041120
  3. LEVOTHYROXINE SODIUM [Concomitant]

REACTIONS (2)
  - PALPITATIONS [None]
  - SUPRAVENTRICULAR TACHYCARDIA [None]
